FAERS Safety Report 22157966 (Version 2)
Quarter: 2023Q2

REPORT INFORMATION
  Report Type: Spontaneous
  Country: PT (occurrence: PT)
  Receive Date: 20230330
  Receipt Date: 20230413
  Transmission Date: 20230721
  Serious: Yes (Other)
  Sender: FDA-Public Use
  Company Number: PT-TEVA-2023-PT-2870931

PATIENT
  Age: 67 Year
  Sex: Male

DRUGS (3)
  1. PEMETREXED [Suspect]
     Active Substance: PEMETREXED
     Indication: Lung adenocarcinoma
     Route: 065
  2. PEMBROLIZUMAB [Suspect]
     Active Substance: PEMBROLIZUMAB
     Indication: Lung adenocarcinoma
     Dosage: 200 MG EVERY 3 WEEKS
     Route: 065
  3. CARBOPLATIN [Suspect]
     Active Substance: CARBOPLATIN
     Indication: Lung adenocarcinoma
     Route: 065

REACTIONS (2)
  - Tubulointerstitial nephritis [Recovering/Resolving]
  - Drug ineffective [Unknown]
